FAERS Safety Report 7422078-3 (Version None)
Quarter: 2011Q2

REPORT INFORMATION
  Report Type: 
  Country: None (occurrence: None)
  Receive Date: 20110418
  Receipt Date: 20110405
  Transmission Date: 20111010
  Serious: Yes (Other)
  Sender: FDA-Public Use
  Company Number: FR-GENENTECH-316535

PATIENT
  Sex: Female

DRUGS (4)
  1. MABTHERA [Suspect]
     Indication: MANTLE CELL LYMPHOMA
     Dosage: 596 MG, UNK
     Route: 042
     Dates: start: 20110309
  2. CYTARABINE [Suspect]
     Indication: MANTLE CELL LYMPHOMA
     Dosage: 3180 MG, UNK
     Route: 042
     Dates: start: 20110310
  3. CYTARABINE [Suspect]
     Dosage: 3180 MG, UNK
     Route: 042
     Dates: end: 20110311
  4. ELOXATIN [Suspect]
     Indication: MANTLE CELL LYMPHOMA
     Dosage: 260 MG, UNK
     Route: 042
     Dates: start: 20110310

REACTIONS (2)
  - OXYGEN SATURATION DECREASED [None]
  - PYREXIA [None]
